FAERS Safety Report 23660071 (Version 1)
Quarter: 2024Q1

REPORT INFORMATION
  Report Type: Spontaneous
  Country: US (occurrence: US)
  Receive Date: 20240321
  Receipt Date: 20240321
  Transmission Date: 20240410
  Serious: No
  Sender: FDA-Public Use
  Company Number: US-VISTAPHARM-2024-US-010217

PATIENT
  Age: 73 Year
  Sex: Male
  Weight: 83.01 kg

DRUGS (1)
  1. SUCRALFATE ORAL SUSPENSION [Suspect]
     Active Substance: SUCRALFATE
     Indication: Product used for unknown indication
     Dosage: ONCE A DAY
     Route: 048
     Dates: start: 20240212, end: 20240218

REACTIONS (2)
  - Throat irritation [Recovered/Resolved]
  - Dizziness [Recovered/Resolved]

NARRATIVE: CASE EVENT DATE: 20240212
